FAERS Safety Report 20810090 (Version 1)
Quarter: 2022Q2

REPORT INFORMATION
  Report Type: Spontaneous
  Country: US (occurrence: US)
  Receive Date: 20220510
  Receipt Date: 20220510
  Transmission Date: 20220720
  Serious: No
  Sender: FDA-Public Use
  Company Number: US-OYSTER POINT PHARMA, INC.-2022OYS00324

PATIENT
  Age: 69 Year
  Sex: Male

DRUGS (8)
  1. TYRVAYA [Suspect]
     Active Substance: VARENICLINE TARTRATE
     Indication: Dry eye
     Dosage: 1 SPRAY, EACH NOSTRIL, 1X/DAY
     Route: 045
     Dates: start: 20220318
  2. MESALAMINE [Concomitant]
     Active Substance: MESALAMINE
     Dosage: 2 TABLETS, 1X/DAY EVERY NIGHT
  3. UNSPECIFIED CHOLESTEROL PILL [Concomitant]
     Dosage: UNK
  4. PROTONIX [Concomitant]
     Active Substance: PANTOPRAZOLE SODIUM
  5. MEN^S VITAMINS [Concomitant]
  6. MEN^S FISH OIL [Concomitant]
  7. CALCIUM\VITAMIN D [Concomitant]
     Active Substance: CALCIUM\VITAMIN D
  8. REFRESH CELLUVISC [Concomitant]
     Active Substance: CARBOXYMETHYLCELLULOSE SODIUM
     Dosage: 1 DROP IN EACH EYE, AS NEEDED
     Route: 047

REACTIONS (5)
  - Intranasal paraesthesia [Recovered/Resolved]
  - Drug ineffective [Not Recovered/Not Resolved]
  - Off label use [Not Recovered/Not Resolved]
  - Product after taste [Recovered/Resolved]
  - Sneezing [Recovered/Resolved]

NARRATIVE: CASE EVENT DATE: 20220301
